FAERS Safety Report 8290033 (Version 3)
Quarter: 2012Q4

REPORT INFORMATION
  Report Type: 
  Country: FR (occurrence: FR)
  Receive Date: 20111214
  Receipt Date: 20120924
  Transmission Date: 20130627
  Serious: Yes (Death)
  Sender: FDA-Public Use
  Company Number: FR-PFIZER INC-2011299385

PATIENT

DRUGS (2)
  1. DOSTINEX [Suspect]
     Indication: PITUITARY TUMOUR BENIGN
     Dosage: 1 DF, weekly
     Route: 064
     Dates: start: 201012, end: 20110917
  2. DOSTINEX [Suspect]
     Indication: PROLACTINOMA

REACTIONS (2)
  - Maternal exposure timing unspecified [Fatal]
  - Brain malformation [Fatal]
